FAERS Safety Report 9000186 (Version 1)
Quarter: 2013Q1

REPORT INFORMATION
  Report Type: Spontaneous
  Country: JP (occurrence: JP)
  Receive Date: 20130102
  Receipt Date: 20130102
  Transmission Date: 20140127
  Serious: Yes (Death)
  Sender: FDA-Public Use
  Company Number: JP-MYLANLABS-2012S1026446

PATIENT
  Age: 67 Year
  Sex: Female

DRUGS (8)
  1. CICLOSPORIN [Suspect]
     Indication: IMMUNOSUPPRESSANT DRUG THERAPY
     Route: 065
  2. PREDNISOLONE [Suspect]
     Indication: GRAFT VERSUS HOST DISEASE IN INTESTINE
     Dosage: 1 MG/KG
     Route: 065
  3. TACROLIMUS [Suspect]
     Indication: PROPHYLAXIS AGAINST GRAFT VERSUS HOST DISEASE
     Route: 050
  4. TACROLIMUS [Suspect]
     Indication: GRAFT VERSUS HOST DISEASE IN INTESTINE
     Route: 050
  5. TACROLIMUS [Suspect]
     Indication: PROPHYLAXIS AGAINST GRAFT VERSUS HOST DISEASE
     Route: 065
  6. TACROLIMUS [Suspect]
     Indication: GRAFT VERSUS HOST DISEASE IN INTESTINE
     Route: 065
  7. METHOTREXATE [Concomitant]
     Indication: PROPHYLAXIS AGAINST GRAFT VERSUS HOST DISEASE
     Dosage: 10 MG/M2 ON DAY 1; THEN 7 MG/M2 ON DAYS 3, 6, 11
     Route: 065
  8. METHOTREXATE [Concomitant]
     Indication: PROPHYLAXIS AGAINST GRAFT VERSUS HOST DISEASE
     Dosage: 7 MG/M2 ON DAYS 3, 6, 11
     Route: 065

REACTIONS (7)
  - Graft versus host disease in intestine [Fatal]
  - Condition aggravated [Fatal]
  - Portal venous gas [Fatal]
  - Pneumatosis intestinalis [Fatal]
  - Gastrointestinal bacterial infection [Fatal]
  - Septic shock [Fatal]
  - Renal impairment [Unknown]
